FAERS Safety Report 13123309 (Version 1)
Quarter: 2017Q1

REPORT INFORMATION
  Report Type: Spontaneous
  Country: US (occurrence: US)
  Receive Date: 20170117
  Receipt Date: 20170117
  Transmission Date: 20170428
  Serious: No
  Sender: FDA-Public Use
  Company Number: US-CELGENEUS-USA-2017012369

PATIENT
  Sex: Female
  Weight: 70.82 kg

DRUGS (4)
  1. POMALYST [Suspect]
     Active Substance: POMALIDOMIDE
     Indication: PLASMA CELL MYELOMA RECURRENT
     Route: 048
  2. DARZALEX [Suspect]
     Active Substance: DARATUMUMAB
     Indication: PLASMA CELL MYELOMA
     Route: 041
     Dates: start: 20160504
  3. DARZALEX [Suspect]
     Active Substance: DARATUMUMAB
     Dosage: 1076 MILLIGRAM
     Route: 041
  4. DARZALEX [Suspect]
     Active Substance: DARATUMUMAB
     Route: 041

REACTIONS (2)
  - Vocal cord disorder [Unknown]
  - Therapeutic response decreased [Unknown]
